FAERS Safety Report 26194756 (Version 1)
Quarter: 2025Q4

REPORT INFORMATION
  Report Type: Spontaneous
  Country: US (occurrence: US)
  Receive Date: 20251224
  Receipt Date: 20251224
  Transmission Date: 20260118
  Serious: No
  Sender: GRIFOLS
  Company Number: US-IGSA-BIG0040300

PATIENT
  Sex: Female

DRUGS (2)
  1. XEMBIFY [Suspect]
     Active Substance: HUMAN IMMUNOGLOBULIN G
     Indication: Immunodeficiency
     Dosage: 8 GRAM
     Route: 058
  2. HYDROXYCHLOROQUINE DIPHOSPHATE [Concomitant]
     Active Substance: HYDROXYCHLOROQUINE DIPHOSPHATE

REACTIONS (9)
  - Illness [Unknown]
  - Rash [Unknown]
  - Productive cough [Unknown]
  - Upper respiratory tract infection [Unknown]
  - Confusional state [Unknown]
  - Coordination abnormal [Unknown]
  - Amnesia [Unknown]
  - Headache [Unknown]
  - Fatigue [Unknown]
